FAERS Safety Report 10085849 (Version 5)
Quarter: 2017Q1

REPORT INFORMATION
  Report Type: Spontaneous
  Country: US (occurrence: US)
  Receive Date: 20140418
  Receipt Date: 20170130
  Transmission Date: 20170428
  Serious: Yes (Hospitalization, Other)
  Sender: FDA-Public Use
  Company Number: US-PFIZER INC-2014105576

PATIENT
  Age: 54 Year
  Sex: Male
  Weight: 85.71 kg

DRUGS (4)
  1. VFEND [Suspect]
     Active Substance: VORICONAZOLE
     Indication: STEM CELL TRANSPLANT
     Dosage: 200 MG, 2X/DAY
     Route: 048
     Dates: start: 201201
  2. AMOXICILLIN. [Concomitant]
     Active Substance: AMOXICILLIN
     Dosage: UNK
  3. VFEND [Suspect]
     Active Substance: VORICONAZOLE
     Indication: FUNGAL INFECTION
     Dosage: 200 MG, 2X/DAY
     Route: 048
     Dates: start: 20161220
  4. PENICILLIN NOS [Concomitant]
     Active Substance: PENICILLIN
     Dosage: UNK

REACTIONS (4)
  - Graft versus host disease [Unknown]
  - Influenza [Unknown]
  - White blood cell count decreased [Unknown]
  - Small intestinal obstruction [Unknown]
